FAERS Safety Report 17063608 (Version 1)
Quarter: 2019Q4

REPORT INFORMATION
  Report Type: Spontaneous
  Country: US (occurrence: US)
  Receive Date: 20191023
  Receipt Date: 20191023
  Transmission Date: 20200122
  Serious: Yes (Other)
  Sender: FDA-Public Use
  Company Number: None

PATIENT
  Age: 55 Year
  Sex: Female

DRUGS (8)
  1. VITAMIN C 250MG TAB [Concomitant]
  2. VITAMIN E 1000UNIT [Concomitant]
  3. MAGNESIUM POW GLYCINET [Concomitant]
  4. LEVOTHYROXINE 100MCG [Concomitant]
     Active Substance: LEVOTHYROXINE
  5. KRILL OIL 300MG [Concomitant]
  6. VITAMIN D 1000UNIT CAP [Concomitant]
  7. ENBREL [Suspect]
     Active Substance: ETANERCEPT
     Indication: PSORIATIC ARTHROPATHY
     Route: 058
     Dates: start: 20181027
  8. VITAMIN B12 500MCG [Concomitant]

REACTIONS (3)
  - Skin irritation [None]
  - Rash pruritic [None]
  - Skin ulcer [None]

NARRATIVE: CASE EVENT DATE: 20191016
